FAERS Safety Report 4954067-2 (Version None)
Quarter: 2006Q1

REPORT INFORMATION
  Report Type: 
  Country: None (occurrence: None)
  Receive Date: 20060323
  Receipt Date: 20060323
  Transmission Date: 20060701
  Serious: No
  Sender: FDA-Public Use
  Company Number: None

PATIENT
  Age: 80 Year
  Sex: Female
  Weight: 58.9676 kg

DRUGS (1)
  1. LEXAPRO [Suspect]
     Dosage: 20 MG ONCE DAILY
     Dates: start: 20060310, end: 20060319

REACTIONS (6)
  - ANXIETY [None]
  - DRUG DISPENSING ERROR [None]
  - GAIT DISTURBANCE [None]
  - MEDICATION ERROR [None]
  - TREMOR [None]
  - VISUAL DISTURBANCE [None]
